FAERS Safety Report 5038574-2 (Version None)
Quarter: 2006Q2

REPORT INFORMATION
  Report Type: 
  Country: None (occurrence: None)
  Receive Date: 20060629
  Receipt Date: 20060607
  Transmission Date: 20061013
  Serious: Yes (Other)
  Sender: FDA-Public Use
  Company Number: JP-BRISTOL-MYERS SQUIBB COMPANY-13406103

PATIENT
  Age: 76 Year
  Sex: Female

DRUGS (2)
  1. TAXOL [Suspect]
     Indication: OVARIAN CANCER
     Route: 042
     Dates: start: 20031208, end: 20040105
  2. PARAPLATIN [Suspect]
     Indication: OVARIAN CANCER
     Route: 042
     Dates: start: 20031208, end: 20040105

REACTIONS (4)
  - CANDIDA SEPSIS [None]
  - RECTAL PROLAPSE [None]
  - RENAL FAILURE ACUTE [None]
  - SEPTIC SHOCK [None]
